FAERS Safety Report 13850501 (Version 1)
Quarter: 2017Q3

REPORT INFORMATION
  Report Type: Spontaneous
  Country: FR (occurrence: FR)
  Receive Date: 20170809
  Receipt Date: 20170809
  Transmission Date: 20171127
  Serious: Yes (Hospitalization)
  Sender: FDA-Public Use
  Company Number: FR-SA-2017SA141994

PATIENT
  Age: 31 Year
  Sex: Female

DRUGS (2)
  1. STILNOX [Suspect]
     Active Substance: ZOLPIDEM TARTRATE
     Dosage: 7 IN 1DAYS(S))
     Route: 048
  2. LEVOTHYROX [Concomitant]
     Active Substance: LEVOTHYROXINE
     Route: 065

REACTIONS (5)
  - Electroencephalogram abnormal [Not Recovered/Not Resolved]
  - Drug dependence [Unknown]
  - Overdose [Unknown]
  - Disorientation [Recovering/Resolving]
  - Epilepsy [Recovered/Resolved]
